FAERS Safety Report 5644167-6 (Version None)
Quarter: 2008Q1

REPORT INFORMATION
  Report Type: 
  Country: None (occurrence: None)
  Receive Date: 20080229
  Receipt Date: 20080219
  Transmission Date: 20080703
  Serious: Yes (Other)
  Sender: FDA-Public Use
  Company Number: AT-BAYER-200717674GPV

PATIENT
  Age: 33 Year
  Sex: Female

DRUGS (1)
  1. MIRENA [Suspect]
     Indication: DRUG USE FOR UNKNOWN INDICATION
     Route: 015
     Dates: start: 20071019, end: 20071112

REACTIONS (3)
  - ABDOMINAL DISCOMFORT [None]
  - ADNEXITIS [None]
  - CHLAMYDIAL INFECTION [None]
